FAERS Safety Report 4712877-0 (Version None)
Quarter: 2005Q3

REPORT INFORMATION
  Report Type: 
  Country: None (occurrence: None)
  Receive Date: 20050711
  Receipt Date: 20050628
  Transmission Date: 20060218
  Serious: Yes (Other)
  Sender: FDA-Public Use
  Company Number: 2005090001

PATIENT
  Age: 50 Year
  Sex: Male

DRUGS (5)
  1. LIPITOR [Suspect]
     Indication: HYPERLIPIDAEMIA
     Dosage: 10 MG (1 D), ORAL
     Route: 048
     Dates: start: 20050603, end: 20050611
  2. UNICON (THEOPHYLLINE) [Concomitant]
  3. ONON (PRANLUKAST) [Concomitant]
  4. FLUTIDE DISKUS (FLUTICASONE PROPIONATE) [Concomitant]
  5. SULTANOL (SALBUTAMOL) [Concomitant]

REACTIONS (2)
  - GENERALISED ERYTHEMA [None]
  - RASH [None]
